FAERS Safety Report 8465147-1 (Version None)
Quarter: 2012Q2

REPORT INFORMATION
  Report Type: 
  Country: None (occurrence: None)
  Receive Date: 20120626
  Receipt Date: 20120620
  Transmission Date: 20120825
  Serious: Yes (Other)
  Sender: FDA-Public Use
  Company Number: US-PFIZER INC-2012149163

PATIENT
  Sex: Female
  Weight: 72 kg

DRUGS (2)
  1. LYRICA [Suspect]
     Indication: PARAESTHESIA
     Dosage: 150 MG, 2X/DAY
     Route: 048
  2. LYRICA [Suspect]
     Indication: PAIN IN EXTREMITY

REACTIONS (3)
  - PULMONARY FIBROSIS [None]
  - PARAESTHESIA [None]
  - PAIN IN EXTREMITY [None]
